FAERS Safety Report 17672260 (Version 2)
Quarter: 2020Q2

REPORT INFORMATION
  Report Type: Spontaneous
  Country: GB (occurrence: GB)
  Receive Date: 20200415
  Receipt Date: 20200512
  Transmission Date: 20200713
  Serious: Yes (Other)
  Sender: FDA-Public Use
  Company Number: GB-MYLANLABS-2020M1036336

PATIENT
  Age: 32 Year
  Sex: Male

DRUGS (1)
  1. CLOZARIL [Suspect]
     Active Substance: CLOZAPINE
     Indication: SCHIZOPHRENIA
     Dosage: UNK
     Route: 048
     Dates: start: 20200228, end: 202004

REACTIONS (6)
  - Red blood cell count decreased [Unknown]
  - Chest pain [Unknown]
  - White blood cell count decreased [Recovered/Resolved]
  - Eosinophilia [Unknown]
  - Neutrophil count decreased [Recovered/Resolved]
  - Lymphocyte count decreased [Not Recovered/Not Resolved]

NARRATIVE: CASE EVENT DATE: 20200330
